FAERS Safety Report 6751836-3 (Version None)
Quarter: 2010Q2

REPORT INFORMATION
  Report Type: 
  Country: None (occurrence: None)
  Receive Date: 20100526
  Receipt Date: 20100329
  Transmission Date: 20101027
  Serious: No
  Sender: FDA-Public Use
  Company Number: 306571

PATIENT
  Age: 42 Year
  Sex: Female
  Weight: 157.8 kg

DRUGS (4)
  1. VICTOZA [Suspect]
     Indication: TYPE 2 DIABETES MELLITUS
     Dosage: 0.6 MG, QD, SUBCUTANEOUS
     Route: 058
  2. LEVEMIR [Concomitant]
  3. ACTOS /01460201/ PIOGLITAZONE [Concomitant]
  4. SYNTHROID [Concomitant]

REACTIONS (1)
  - RASH [None]
